FAERS Safety Report 24526658 (Version 1)
Quarter: 2024Q4

REPORT INFORMATION
  Report Type: Spontaneous
  Country: RU (occurrence: RU)
  Receive Date: 20241021
  Receipt Date: 20241021
  Transmission Date: 20250115
  Serious: No
  Sender: ROCHE
  Company Number: RU-ROCHE-3331918

PATIENT
  Age: 45 Year
  Sex: Female

DRUGS (10)
  1. VEMURAFENIB [Suspect]
     Active Substance: VEMURAFENIB
     Indication: Metastatic malignant melanoma
     Dosage: 1ST COURSE?(1,920 MG/DAY)
     Route: 065
     Dates: start: 20220505
  2. VEMURAFENIB [Suspect]
     Active Substance: VEMURAFENIB
     Dosage: (4 TABLETS, 240 MG EACH), (1,920 MG/DAY), DAY 1-21 DAYS
     Route: 065
     Dates: start: 202210
  3. VEMURAFENIB [Suspect]
     Active Substance: VEMURAFENIB
     Dosage: FROM DAY 22 ONWARDS?(1,440 MG/DAY) DAILY
     Route: 065
     Dates: start: 202210
  4. VEMURAFENIB [Suspect]
     Active Substance: VEMURAFENIB
     Dosage: (1,440 MG/DAY) DAILY
     Route: 065
     Dates: start: 202304
  5. COBIMETINIB [Suspect]
     Active Substance: COBIMETINIB
     Indication: Metastatic malignant melanoma
     Dosage: 1ST COURSE?(3 TABLETS, 20 MG EACH), ) FOR 21 DAYS/WITH 7-DAY INTERVAL
     Route: 065
     Dates: start: 20220505
  6. COBIMETINIB [Suspect]
     Active Substance: COBIMETINIB
     Dosage: 3 TABLETS, 20 MG EACH) FOR 21 DAYS/WITH 7-DAY INTERVAL
     Route: 065
     Dates: start: 202210
  7. COBIMETINIB [Suspect]
     Active Substance: COBIMETINIB
     Dosage: (3 TABLETS, 20 MG EACH) FOR 21 DAYS/WITH 7- DAY INTERVAL
     Route: 065
     Dates: start: 202304
  8. ATEZOLIZUMAB [Suspect]
     Active Substance: ATEZOLIZUMAB
     Indication: Metastatic malignant melanoma
     Dosage: AFTER 6 CYCLES OF VEMUROFENIB+COBIMETINIB /NOV/2022
     Route: 041
     Dates: start: 20220505
  9. ATEZOLIZUMAB [Suspect]
     Active Substance: ATEZOLIZUMAB
     Route: 041
     Dates: start: 202210
  10. ATEZOLIZUMAB [Suspect]
     Active Substance: ATEZOLIZUMAB
     Dosage: ON THE 29TH DAY
     Route: 041
     Dates: start: 202304

REACTIONS (7)
  - Diarrhoea [Recovered/Resolved]
  - Erythema [Recovered/Resolved]
  - Pyrexia [Recovered/Resolved]
  - Amylase increased [Recovered/Resolved]
  - Skin toxicity [Recovered/Resolved]
  - Blood pressure increased [Recovered/Resolved]
  - COVID-19 [Recovered/Resolved]

NARRATIVE: CASE EVENT DATE: 20220801
